FAERS Safety Report 8810658 (Version 1)
Quarter: 2012Q4

REPORT INFORMATION
  Report Type: Spontaneous
  Country: US (occurrence: None)
  Receive Date: 20120924
  Receipt Date: 20120924
  Transmission Date: 20130627
  Serious: Yes (Disabling)
  Sender: FDA-Public Use
  Company Number: None

PATIENT
  Age: 42 Year
  Sex: Female
  Weight: 56.7 kg

DRUGS (3)
  1. ZOLOFT [Suspect]
     Indication: DEPRESSION
     Dates: start: 20120620, end: 20120910
  2. ADVAIR [Concomitant]
  3. GENERIC CLARITIN [Concomitant]

REACTIONS (3)
  - Sexual dysfunction [None]
  - Libido decreased [None]
  - Anorgasmia [None]
